FAERS Safety Report 25922604 (Version 1)
Quarter: 2025Q4

REPORT INFORMATION
  Report Type: Spontaneous
  Country: US (occurrence: US)
  Receive Date: 20251015
  Receipt Date: 20251015
  Transmission Date: 20260117
  Serious: No
  Sender: BAXTER
  Company Number: US-BAXTER-2025BAX022465

PATIENT
  Age: 73 Year
  Sex: Female

DRUGS (2)
  1. NITROGLYCERIN IN DEXTROSE [Suspect]
     Active Substance: NITROGLYCERIN
     Indication: Interventional procedure
     Dosage: 100 UG
     Route: 013
     Dates: start: 20251007, end: 20251007
  2. VERAPAMIL [Concomitant]
     Active Substance: VERAPAMIL HYDROCHLORIDE
     Indication: Interventional procedure
     Dosage: 2.5 MG (VERAPAMIL 5MG/2ML SDV))
     Route: 013
     Dates: start: 20251007, end: 20251007

REACTIONS (1)
  - Hypotension [Recovered/Resolved]

NARRATIVE: CASE EVENT DATE: 20251007
